FAERS Safety Report 16343701 (Version 6)
Quarter: 2020Q2

REPORT INFORMATION
  Report Type: Spontaneous
  Country: US (occurrence: US)
  Receive Date: 20190522
  Receipt Date: 20200526
  Transmission Date: 20200713
  Serious: Yes (Other)
  Sender: FDA-Public Use
  Company Number: US-PFIZER INC-2019217573

PATIENT
  Age: 57 Year
  Sex: Female

DRUGS (1)
  1. XELJANZ XR [Suspect]
     Active Substance: TOFACITINIB CITRATE
     Indication: RHEUMATOID ARTHRITIS
     Dosage: 11 MG, UNK

REACTIONS (12)
  - Musculoskeletal stiffness [Unknown]
  - Weight decreased [Unknown]
  - Pneumonia [Unknown]
  - Influenza [Unknown]
  - Foot deformity [Unknown]
  - Pain [Unknown]
  - Joint swelling [Unknown]
  - Feeding disorder [Unknown]
  - Urinary tract infection [Unknown]
  - Swelling [Unknown]
  - Breakthrough pain [Unknown]
  - Peripheral swelling [Unknown]
